FAERS Safety Report 16720152 (Version 1)
Quarter: 2019Q3

REPORT INFORMATION
  Report Type: Spontaneous
  Country: GB (occurrence: GB)
  Receive Date: 20190820
  Receipt Date: 20190820
  Transmission Date: 20191005
  Serious: Yes (Life-Threatening, Other)
  Sender: FDA-Public Use
  Company Number: GB-PFIZER INC-2019353811

PATIENT
  Age: 86 Year
  Sex: Female
  Weight: 81 kg

DRUGS (9)
  1. IBUPROFEN. [Suspect]
     Active Substance: IBUPROFEN
     Dosage: 400 MG, UNK
  2. OMEPRAZOLE. [Concomitant]
     Active Substance: OMEPRAZOLE
     Dosage: 1 DF, DAILY
     Dates: start: 20190115
  3. DOXAZOSIN [Concomitant]
     Active Substance: DOXAZOSIN MESYLATE
     Dosage: 1 DOSAGE FORM (DF) ONCE DAILY IN THE MORNING
     Dates: start: 20181217
  4. AMOXICILLIN. [Concomitant]
     Active Substance: AMOXICILLIN
     Dosage: 3 DF, 1X/DAY
     Dates: start: 20190621, end: 20190626
  5. LOSARTAN. [Concomitant]
     Active Substance: LOSARTAN
     Dosage: 1 DF, DAILY
     Dates: start: 20181217
  6. ALENDRONIC ACID [Concomitant]
     Active Substance: ALENDRONIC ACID
     Dosage: 1 DF, WEEKLY (SWALLOW WITH PLENTY OF WATER)
     Dates: start: 20181217
  7. ADCAL [Concomitant]
     Dosage: 4 DF, DAILY
     Dates: start: 20190115
  8. PREDNISOLONE. [Concomitant]
     Active Substance: PREDNISOLONE
     Dosage: REDUCE BY 1MG EVERY 2-3 WEEKS
     Dates: start: 20181217
  9. FUROSEMIDE. [Concomitant]
     Active Substance: FUROSEMIDE
     Dosage: 1 DF ONCE DAILY (EACH MORNING)
     Dates: start: 20190515

REACTIONS (1)
  - Tubulointerstitial nephritis [Recovering/Resolving]
